FAERS Safety Report 25022948 (Version 2)
Quarter: 2025Q1

REPORT INFORMATION
  Report Type: Report from Study
  Country: US (occurrence: US)
  Receive Date: 20250228
  Receipt Date: 20250327
  Transmission Date: 20250408
  Serious: Yes (Hospitalization, Other)
  Sender: BAYER HEALTHCARE PHARMACEUTICALS INC.
  Company Number: US-BAYER-2024A176438

PATIENT
  Age: 62 Year
  Sex: Female
  Weight: 70.748 kg

DRUGS (15)
  1. ADEMPAS [Suspect]
     Active Substance: RIOCIGUAT
     Indication: Pulmonary hypertension
     Dosage: 2.5 MG, TID
     Dates: start: 20240730
  2. ADEMPAS [Suspect]
     Active Substance: RIOCIGUAT
     Indication: Pulmonary arterial hypertension
     Dosage: 2.5 MG, TID
     Route: 048
     Dates: start: 20240814
  3. ADEMPAS [Suspect]
     Active Substance: RIOCIGUAT
     Indication: Pulmonary hypertension
     Dosage: 2.5 MG, TID
     Route: 048
  4. ADEMPAS [Suspect]
     Active Substance: RIOCIGUAT
     Indication: Pulmonary hypertension
     Dosage: 2.5 MG, TID
     Route: 048
  5. ZOLOFT [Concomitant]
     Active Substance: SERTRALINE HYDROCHLORIDE
  6. RAMIPRIL [Concomitant]
     Active Substance: RAMIPRIL
  7. ADVAIR HFA [Concomitant]
     Active Substance: FLUTICASONE PROPIONATE\SALMETEROL XINAFOATE
  8. GABAPENTIN [Concomitant]
     Active Substance: GABAPENTIN
  9. ELIQUIS [Concomitant]
     Active Substance: APIXABAN
  10. ALBUTEROL SULFATE [Concomitant]
     Active Substance: ALBUTEROL SULFATE
  11. MORPHINE SULFATE [Concomitant]
     Active Substance: MORPHINE SULFATE
  12. DULOXETINE HYDROCHLORIDE [Concomitant]
     Active Substance: DULOXETINE HYDROCHLORIDE
  13. OXYCODONE AND ACETAMINOPHEN [Concomitant]
     Active Substance: ACETAMINOPHEN\OXYCODONE HYDROCHLORIDE
  14. ONDANSETRON HYDROCHLORIDE [Concomitant]
     Active Substance: ONDANSETRON HYDROCHLORIDE
  15. FENTANYL [Concomitant]
     Active Substance: FENTANYL

REACTIONS (9)
  - Pulmonary angioplasty [None]
  - Pulmonary angioplasty [None]
  - Pulmonary angioplasty [None]
  - Abdominal pain [None]
  - Neoplasm malignant [Not Recovered/Not Resolved]
  - Norovirus infection [Recovering/Resolving]
  - Weight decreased [None]
  - Pain [None]
  - Hypotension [None]

NARRATIVE: CASE EVENT DATE: 20241211
